FAERS Safety Report 22656502 (Version 1)
Quarter: 2023Q2

REPORT INFORMATION
  Report Type: Spontaneous
  Country: US (occurrence: US)
  Receive Date: 20230629
  Receipt Date: 20230629
  Transmission Date: 20230721
  Serious: No
  Sender: FDA-Public Use
  Company Number: US-ALKEM LABORATORIES LIMITED-US-ALKEM-2023-02888

PATIENT
  Age: 77 Year
  Sex: Female

DRUGS (1)
  1. COLESEVELAM HYDROCHLORIDE [Suspect]
     Active Substance: COLESEVELAM HYDROCHLORIDE
     Indication: Blood cholesterol
     Dosage: 3.75 MILLIGRAM, QD
     Route: 048
     Dates: start: 20230228, end: 20230302

REACTIONS (2)
  - Abdominal pain upper [Not Recovered/Not Resolved]
  - Choking [Unknown]

NARRATIVE: CASE EVENT DATE: 20230228
